FAERS Safety Report 13285767 (Version 1)
Quarter: 2017Q1

REPORT INFORMATION
  Report Type: Spontaneous
  Country: US (occurrence: US)
  Receive Date: 20170301
  Receipt Date: 20170301
  Transmission Date: 20170428
  Serious: Yes (Other)
  Sender: FDA-Public Use
  Company Number: None

PATIENT
  Sex: Female

DRUGS (1)
  1. SUTENT [Suspect]
     Active Substance: SUNITINIB MALATE
     Indication: THALASSAEMIA ALPHA
     Dosage: 50MG DAILY FOR 2 WEEKS ON, 1 WEEK OFF PO
     Route: 048
     Dates: start: 20170214

REACTIONS (3)
  - Arthralgia [None]
  - Yellow skin [None]
  - Hypoaesthesia [None]
